FAERS Safety Report 20092112 (Version 1)
Quarter: 2021Q4

REPORT INFORMATION
  Report Type: Spontaneous
  Country: US (occurrence: US)
  Receive Date: 20211119
  Receipt Date: 20211119
  Transmission Date: 20220303
  Serious: Yes (Other)
  Sender: FDA-Public Use
  Company Number: US-ALLERGAN-2139052US

PATIENT
  Sex: Female

DRUGS (3)
  1. BOTOX [Suspect]
     Active Substance: ONABOTULINUMTOXINA
     Indication: Migraine
     Dosage: UNK, SINGLE
  2. METHYLBENACTYZIUM BROMIDE [Suspect]
     Active Substance: METHYLBENACTYZIUM BROMIDE
     Indication: Product used for unknown indication
  3. UNSPECIFIED INGREDIENT [Suspect]
     Active Substance: UNSPECIFIED INGREDIENT
     Indication: Product used for unknown indication

REACTIONS (6)
  - Loss of consciousness [Unknown]
  - Feeling abnormal [Unknown]
  - Tremor [Unknown]
  - Aphasia [Unknown]
  - Concussion [Unknown]
  - Drug ineffective [Unknown]
